FAERS Safety Report 5267111-2 (Version None)
Quarter: 2007Q1

REPORT INFORMATION
  Report Type: 
  Country: None (occurrence: None)
  Receive Date: 20070316
  Receipt Date: 20070307
  Transmission Date: 20070707
  Serious: Yes (Other)
  Sender: FDA-Public Use
  Company Number: PHHO2007ES04368

PATIENT
  Age: 65 Year
  Sex: Male

DRUGS (7)
  1. CYCLOSPORINE [Suspect]
     Indication: RENAL TRANSPLANT
     Dosage: 350 MG, QD
     Route: 048
     Dates: start: 20060424
  2. CYCLOSPORINE [Suspect]
     Dosage: 150 MG, QD
     Route: 048
  3. MYCOPHENOLATE MOFETIL [Concomitant]
     Indication: RENAL TRANSPLANT
     Dates: start: 20060420
  4. SOLU MODERIN [Concomitant]
     Indication: RENAL TRANSPLANT
     Dates: start: 20060420, end: 20060423
  5. PREDNISONE [Concomitant]
     Indication: RENAL TRANSPLANT
     Dates: start: 20060425
  6. SIMULECT [Concomitant]
  7. CORTICOSTEROIDS [Concomitant]

REACTIONS (2)
  - DEEP VEIN THROMBOSIS [None]
  - INFLAMMATION [None]
